FAERS Safety Report 15357257 (Version 1)
Quarter: 2018Q3

REPORT INFORMATION
  Report Type: Report from Study
  Country: GB (occurrence: GB)
  Receive Date: 20180906
  Receipt Date: 20180906
  Transmission Date: 20181010
  Serious: Yes (Other)
  Sender: FDA-Public Use
  Company Number: GB-AMGEN-GBRSL2018108540

PATIENT
  Age: 51 Year
  Sex: Female
  Weight: 77.8 kg

DRUGS (4)
  1. AMITRIPTYLINE [Concomitant]
     Active Substance: AMITRIPTYLINE
     Indication: ANXIETY
     Dosage: 20 MG, QHS
     Dates: start: 20180515
  2. REPATHA [Suspect]
     Active Substance: EVOLOCUMAB
     Indication: TYPE IIA HYPERLIPIDAEMIA
  3. REPATHA [Suspect]
     Active Substance: EVOLOCUMAB
     Indication: BLOOD CHOLESTEROL INCREASED
     Dosage: 140 MG, Q2WK
     Route: 058
     Dates: start: 20180802, end: 20180806
  4. DIAZEPAM. [Concomitant]
     Active Substance: DIAZEPAM
     Indication: ANXIETY
     Dosage: 5 MG, AS NECESSARY TID
     Dates: start: 20160128

REACTIONS (16)
  - Glossitis [Not Recovered/Not Resolved]
  - Throat irritation [Recovered/Resolved]
  - Rash macular [Recovered/Resolved]
  - Fatigue [Recovered/Resolved]
  - Epistaxis [Recovering/Resolving]
  - Oral disorder [Unknown]
  - Rhinorrhoea [Recovering/Resolving]
  - Salivary hypersecretion [Unknown]
  - Headache [Recovered/Resolved]
  - Rash pruritic [Recovered/Resolved]
  - Oral pruritus [Not Recovered/Not Resolved]
  - Plicated tongue [Not Recovered/Not Resolved]
  - Pain [Unknown]
  - Nausea [Recovered/Resolved]
  - Formication [Recovering/Resolving]
  - Skin burning sensation [Recovering/Resolving]

NARRATIVE: CASE EVENT DATE: 2018
